FAERS Safety Report 14853993 (Version 2)
Quarter: 2018Q2

REPORT INFORMATION
  Report Type: Spontaneous
  Country: BG (occurrence: BG)
  Receive Date: 20180507
  Receipt Date: 20180518
  Transmission Date: 20180711
  Serious: Yes (Death, Other)
  Sender: FDA-Public Use
  Company Number: PHHY2018BG002275

PATIENT
  Age: 4 Month
  Sex: Female

DRUGS (2)
  1. TACROLIMUS. [Suspect]
     Active Substance: TACROLIMUS
     Indication: LIVER TRANSPLANT
     Dosage: UNK
     Route: 065
  2. METHYLPREDNISOLONE. [Concomitant]
     Active Substance: METHYLPREDNISOLONE
     Indication: LIVER TRANSPLANT
     Dosage: UNK
     Route: 065

REACTIONS (13)
  - Respiratory failure [Unknown]
  - Generalised tonic-clonic seizure [Unknown]
  - Abdominal distension [Unknown]
  - Anaemia [Unknown]
  - Hypoglycaemia [Unknown]
  - Decreased appetite [Unknown]
  - Pyrexia [Unknown]
  - Vomiting [Unknown]
  - Somnolence [Unknown]
  - Mucous stools [Unknown]
  - Pancytopenia [Unknown]
  - Asthenia [Unknown]
  - Multiple organ dysfunction syndrome [Fatal]
